FAERS Safety Report 5024488-0 (Version None)
Quarter: 2006Q2

REPORT INFORMATION
  Report Type: 
  Country: None (occurrence: None)
  Receive Date: 20060613
  Receipt Date: 20060607
  Transmission Date: 20061013
  Serious: Yes (Hospitalization)
  Sender: FDA-Public Use
  Company Number: 2006AP02617

PATIENT
  Age: 12 Year
  Sex: Male

DRUGS (3)
  1. PULMICORT [Suspect]
     Indication: ASTHMA
     Route: 055
     Dates: start: 20060525, end: 20060529
  2. PULMICORT [Suspect]
     Route: 055
     Dates: start: 20060525, end: 20060529
  3. TRIAMCINOLONE ACETONIDE [Concomitant]
     Indication: RHINITIS ALLERGIC
     Route: 045
     Dates: start: 20060525

REACTIONS (6)
  - ASTHENIA [None]
  - HEADACHE [None]
  - NAUSEA [None]
  - SOMNOLENCE [None]
  - WEIGHT DECREASED [None]
  - YELLOW SKIN [None]
